FAERS Safety Report 11444622 (Version 1)
Quarter: 2015Q3

REPORT INFORMATION
  Report Type: Spontaneous
  Country: US (occurrence: None)
  Receive Date: 20150901
  Receipt Date: 20150901
  Transmission Date: 20151125
  Serious: Yes (Death)
  Sender: FDA-Public Use
  Company Number: None

PATIENT
  Age: 85 Year
  Sex: Male

DRUGS (12)
  1. KCI [Concomitant]
  2. CHOLECALCIFEROL [Concomitant]
     Active Substance: CHOLECALCIFEROL
  3. ASA [Concomitant]
     Active Substance: ASPIRIN
  4. ALBUTEROL. [Concomitant]
     Active Substance: ALBUTEROL
  5. FUROSEMIDE. [Concomitant]
     Active Substance: FUROSEMIDE
  6. MVI [Concomitant]
     Active Substance: VITAMINS
  7. MELATONIN [Concomitant]
     Active Substance: MELATONIN
  8. HYDROCODONE/APAP [Concomitant]
     Active Substance: ACETAMINOPHEN\HYDROCODONE BITARTRATE
  9. WARFARIN [Concomitant]
     Active Substance: WARFARIN
  10. ADEMPAS [Suspect]
     Active Substance: RIOCIGUAT
     Indication: PULMONARY ARTERIAL HYPERTENSION
     Route: 048
     Dates: start: 201503
  11. SENNA [Concomitant]
     Active Substance: SENNA LEAF\SENNOSIDES\SENNOSIDES A AND B
  12. TIOTROPLUM [Concomitant]

REACTIONS (1)
  - Death [None]

NARRATIVE: CASE EVENT DATE: 20150831
